FAERS Safety Report 18917230 (Version 2)
Quarter: 2021Q1

REPORT INFORMATION
  Report Type: Spontaneous
  Country: FR (occurrence: FR)
  Receive Date: 20210219
  Receipt Date: 20210301
  Transmission Date: 20210420
  Serious: Yes (Hospitalization)
  Sender: FDA-Public Use
  Company Number: FR-ASCEND THERAPEUTICS US, LLC-2107044

PATIENT
  Age: 29 Year
  Sex: Female

DRUGS (4)
  1. PROGESTERONE. [Suspect]
     Active Substance: PROGESTERONE
     Route: 048
  2. ESTROGEL [Suspect]
     Active Substance: ESTRADIOL
     Indication: GENDER DYSPHORIA
     Route: 003
     Dates: start: 20180216
  3. OESTRODOSE (ESTRADIOL) [Suspect]
     Active Substance: ESTRADIOL
     Route: 003
     Dates: start: 20180216
  4. ESTROGEL [Suspect]
     Active Substance: ESTRADIOL

REACTIONS (1)
  - Desmoid tumour [Recovering/Resolving]

NARRATIVE: CASE EVENT DATE: 20200901
